FAERS Safety Report 7205972-8 (Version None)
Quarter: 2011Q1

REPORT INFORMATION
  Report Type: 
  Country: None (occurrence: None)
  Receive Date: 20110103
  Receipt Date: 20101222
  Transmission Date: 20110831
  Serious: No
  Sender: FDA-Public Use
  Company Number: US-BIOGENIDEC-2010BI044739

PATIENT
  Sex: Female

DRUGS (2)
  1. TYSABRI [Suspect]
     Indication: MULTIPLE SCLEROSIS
     Route: 042
     Dates: start: 20090404
  2. BOTOX [Concomitant]
     Indication: MUSCULOSKELETAL STIFFNESS
     Route: 058
     Dates: start: 20101001

REACTIONS (1)
  - MUSCLE SPASMS [None]
